FAERS Safety Report 11803602 (Version 1)
Quarter: 2015Q4

REPORT INFORMATION
  Report Type: Spontaneous
  Country: None (occurrence: GB)
  Receive Date: 20151204
  Receipt Date: 20151204
  Transmission Date: 20160305
  Serious: Yes (Death)
  Sender: FDA-Public Use
  Company Number: GB-MEDAC PHARMA, INC.-1045100

PATIENT
  Age: 73 Year
  Sex: Female

DRUGS (1)
  1. METOJECT PEN [Suspect]
     Active Substance: METHOTREXATE

REACTIONS (1)
  - Death [Fatal]

NARRATIVE: CASE EVENT DATE: 20151031
